FAERS Safety Report 7102133-8 (Version None)
Quarter: 2010Q4

REPORT INFORMATION
  Report Type: 
  Country: None (occurrence: None)
  Receive Date: 20101115
  Receipt Date: 20101104
  Transmission Date: 20110411
  Serious: Yes (Other)
  Sender: FDA-Public Use
  Company Number: US-BIOGENIDEC-2010BI036062

PATIENT
  Age: 57 Year
  Sex: Female
  Weight: 102 kg

DRUGS (11)
  1. AVONEX [Suspect]
     Indication: MULTIPLE SCLEROSIS
     Route: 030
     Dates: start: 20030101
  2. CRESTOR [Concomitant]
  3. AMANTADINE [Concomitant]
  4. LEVOTHYROXINE SODIUM [Concomitant]
  5. NEXIUM [Concomitant]
  6. VITAMIN D [Concomitant]
  7. JANUMET [Concomitant]
  8. CLARITIN [Concomitant]
     Indication: MULTIPLE ALLERGIES
  9. IBUPROFEN [Concomitant]
  10. MOTRIN PM [Concomitant]
  11. ASPIRIN [Concomitant]

REACTIONS (1)
  - ENDOMETRIAL CANCER [None]
